FAERS Safety Report 11450070 (Version 1)
Quarter: 2015Q3

REPORT INFORMATION
  Report Type: Spontaneous
  Country: US (occurrence: US)
  Receive Date: 20150903
  Receipt Date: 20150903
  Transmission Date: 20151125
  Serious: No
  Sender: FDA-Public Use
  Company Number: US-ROCHE-1064091

PATIENT
  Sex: Female

DRUGS (2)
  1. PEGASYS [Suspect]
     Active Substance: PEGINTERFERON ALFA-2A
     Indication: HEPATITIS C
     Route: 058
     Dates: start: 20120418
  2. COPEGUS [Suspect]
     Active Substance: RIBAVIRIN
     Indication: HEPATITIS C
     Dosage: AT BEDTIME IN DIDIDED DOSES
     Route: 065
     Dates: start: 20120418

REACTIONS (11)
  - Weight increased [Unknown]
  - Urticaria [Unknown]
  - Arthralgia [Unknown]
  - Vomiting [Unknown]
  - Hiccups [Unknown]
  - Pain of skin [Unknown]
  - Ageusia [Unknown]
  - Rash [Unknown]
  - Musculoskeletal pain [Unknown]
  - Nausea [Not Recovered/Not Resolved]
  - Insomnia [Unknown]
